FAERS Safety Report 8438960-4 (Version None)
Quarter: 2012Q2

REPORT INFORMATION
  Report Type: 
  Country: None (occurrence: None)
  Receive Date: 20120615
  Receipt Date: 20120612
  Transmission Date: 20120825
  Serious: Yes (Other)
  Sender: FDA-Public Use
  Company Number: US-PFIZER INC-2012124276

PATIENT
  Sex: Male
  Weight: 113 kg

DRUGS (4)
  1. DILANTIN [Suspect]
     Indication: CONVULSION
     Dosage: 100 MG, SIX TIMES A DAY
     Route: 048
  2. DILANTIN [Suspect]
     Dosage: UNK
     Route: 048
  3. ZOCOR [Concomitant]
     Indication: BLOOD CHOLESTEROL INCREASED
     Dosage: UNK
  4. LISINOPRIL [Concomitant]
     Indication: HYPERTENSION
     Dosage: UNK

REACTIONS (2)
  - CONVULSION [None]
  - DISTURBANCE IN ATTENTION [None]
